FAERS Safety Report 15356178 (Version 2)
Quarter: 2019Q1

REPORT INFORMATION
  Report Type: Spontaneous
  Country: GB (occurrence: GB)
  Receive Date: 20180906
  Receipt Date: 20190124
  Transmission Date: 20190417
  Serious: Yes (Death, Other)
  Sender: FDA-Public Use
  Company Number: GB-TEVA-2018-GB-951580

PATIENT
  Age: 44 Year
  Sex: Male
  Weight: 82 kg

DRUGS (4)
  1. TEICOPLANIN [Concomitant]
     Active Substance: TEICOPLANIN
     Indication: SKIN LESION
     Route: 065
  2. ANTIBIOTICS NOS [Concomitant]
     Active Substance: UNSPECIFIED INGREDIENT
     Indication: SKIN LESION
     Route: 065
  3. CLARITHROMYCIN. [Suspect]
     Active Substance: CLARITHROMYCIN
     Indication: SKIN LESION
     Route: 048
     Dates: start: 20160124, end: 20160130
  4. HYDROXYCHLOROQUINE [Concomitant]
     Active Substance: HYDROXYCHLOROQUINE
     Indication: SYSTEMIC LUPUS ERYTHEMATOSUS
     Route: 065

REACTIONS (7)
  - Chills [Fatal]
  - Rash maculo-papular [Fatal]
  - Pyrexia [Fatal]
  - Acute lung injury [Fatal]
  - Type IV hypersensitivity reaction [Fatal]
  - Necrotising panniculitis [Fatal]
  - Acute kidney injury [Fatal]

NARRATIVE: CASE EVENT DATE: 20160129
